FAERS Safety Report 4750054-8 (Version None)
Quarter: 2005Q3

REPORT INFORMATION
  Report Type: 
  Country: None (occurrence: None)
  Receive Date: 20050822
  Receipt Date: 20050808
  Transmission Date: 20060218
  Serious: Yes (Other)
  Sender: FDA-Public Use
  Company Number: B0390560A

PATIENT
  Age: 77 Year
  Sex: Female

DRUGS (1)
  1. LITHIUM SALT (FORMULATION UNKNOWN) (LITHIUM SALT) [Suspect]
     Indication: BIPOLAR DISORDER

REACTIONS (4)
  - AZOTAEMIA [None]
  - DELIRIUM [None]
  - LOWER RESPIRATORY TRACT INFECTION [None]
  - NEPHROGENIC DIABETES INSIPIDUS [None]
